FAERS Safety Report 8332558-4 (Version None)
Quarter: 2012Q1

REPORT INFORMATION
  Report Type: 
  Country: None (occurrence: None)
  Receive Date: 20120327
  Receipt Date: 20100712
  Transmission Date: 20120608
  Serious: Yes (Hospitalization)
  Sender: FDA-Public Use
  Company Number: PHHY2010US29277

PATIENT
  Age: 67 Year
  Sex: Male
  Weight: 48.5 kg

DRUGS (12)
  1. NOVOLOG [Concomitant]
  2. AVAPRO [Concomitant]
  3. SIMVASTATIN [Concomitant]
  4. NORVASC [Concomitant]
  5. LASIX [Concomitant]
  6. ZYLOPRIM [Concomitant]
  7. ALLOPURINOL [Concomitant]
  8. AMLODIPINE [Concomitant]
  9. GLEEVEC [Suspect]
     Indication: CHRONIC MYELOID LEUKAEMIA
     Dosage: 400 MG, DAILY, ORAL; 100 MG,
     Route: 048
     Dates: start: 20100406, end: 20100423
  10. GLEEVEC [Suspect]
     Indication: CHRONIC MYELOID LEUKAEMIA
     Dosage: 400 MG, DAILY, ORAL; 100 MG,
     Route: 048
     Dates: start: 20100508, end: 20100517
  11. ZOCOR [Concomitant]
  12. ACTOS (PIOGLITAZONE, PIOGLITAZONE HYDROCHLORIDE) [Concomitant]

REACTIONS (3)
  - NAUSEA [None]
  - ASTHENIA [None]
  - RENAL FAILURE ACUTE [None]
